FAERS Safety Report 9520866 (Version 1)
Quarter: 2013Q1

REPORT INFORMATION
  Report Type: Spontaneous
  Country: PR (occurrence: None)
  Receive Date: 20130305
  Receipt Date: 20130305
  Transmission Date: 20140127
  Serious: Yes (Other)
  Sender: FDA-Public Use
  Company Number: 163-21880-12101038

PATIENT
  Age: 89 Year
  Sex: Male
  Weight: 47.63 kg

DRUGS (3)
  1. REVLIMID [Suspect]
     Indication: PLASMA CELL MYELOMA
     Dosage: 5 MG, 1 IN 1 D, PO
     Route: 048
     Dates: start: 20110802, end: 20121004
  2. PROCRIT [Concomitant]
  3. CORTISONE (CORTISONE) [Concomitant]

REACTIONS (7)
  - Haemoglobin decreased [None]
  - Renal disorder [None]
  - Lung disorder [None]
  - Hypotension [None]
  - Asthenia [None]
  - Nausea [None]
  - Decreased appetite [None]
